FAERS Safety Report 6821281-0 (Version None)
Quarter: 2010Q2

REPORT INFORMATION
  Report Type: 
  Country: None (occurrence: None)
  Receive Date: 20100630
  Receipt Date: 20100616
  Transmission Date: 20101027
  Serious: Yes (Death, Other)
  Sender: FDA-Public Use
  Company Number: AUR_APL-2010-01427

PATIENT
  Age: 52 Year
  Sex: Male

DRUGS (6)
  1. FLUOXETINE HCL [Suspect]
  2. CLOZARIL [Suspect]
     Indication: SCHIZOPHRENIA
     Dosage: 300MG, ORAL
     Route: 048
     Dates: start: 20020130
  3. FERROUS SULFATE TAB [Concomitant]
  4. FOLIC ACID [Concomitant]
  5. VITAMIN B-12 [Concomitant]
  6. DAILY UNSPECIFIED INHALERS FOR ASTHMA [Concomitant]

REACTIONS (26)
  - ANAEMIA VITAMIN B12 DEFICIENCY [None]
  - APATHY [None]
  - ARTERIOSCLEROSIS CORONARY ARTERY [None]
  - BEREAVEMENT [None]
  - BLOOD PRESSURE INCREASED [None]
  - CARDIAC DISORDER [None]
  - CONTUSION [None]
  - CORONARY ARTERY OCCLUSION [None]
  - DELUSION [None]
  - DEPRESSED MOOD [None]
  - DRUG INTERACTION [None]
  - DRUG LEVEL INCREASED [None]
  - HALLUCINATION, AUDITORY [None]
  - HEART RATE INCREASED [None]
  - HERNIA [None]
  - INCORRECT DOSE ADMINISTERED [None]
  - LETHARGY [None]
  - MYOCARDIAL ISCHAEMIA [None]
  - PULMONARY CONGESTION [None]
  - PULMONARY FIBROSIS [None]
  - PULMONARY OEDEMA [None]
  - SALIVARY HYPERSECRETION [None]
  - SOCIAL AVOIDANT BEHAVIOUR [None]
  - STRESS [None]
  - SUICIDAL BEHAVIOUR [None]
  - VENOUS INSUFFICIENCY [None]
